FAERS Safety Report 9752829 (Version 2)
Quarter: 2014Q1

REPORT INFORMATION
  Report Type: Report from Study
  Country: CA (occurrence: CA)
  Receive Date: 20131213
  Receipt Date: 20140107
  Transmission Date: 20141002
  Serious: Yes (Other)
  Sender: FDA-Public Use
  Company Number: CA-AMGEN-CANNI2013086546

PATIENT
  Age: 87 Year
  Sex: Male

DRUGS (8)
  1. XGEVA [Suspect]
     Indication: METASTASES TO BONE
     Dosage: 120 MG, Q4WK
     Route: 058
     Dates: start: 20130108, end: 20130730
  2. DENOSUMAB [Suspect]
     Indication: PRODUCT USED FOR UNKNOWN INDICATION
     Dosage: UNK
     Route: 065
  3. VENTOLIN                           /00139501/ [Concomitant]
     Dosage: 100 MUG, TWO PUFFS, HS
     Dates: start: 20120425
  4. VITAMIN D                          /00107901/ [Concomitant]
     Dosage: 1000 MG, QD
     Route: 048
     Dates: start: 20100909
  5. VITAMIN B12                        /00056201/ [Concomitant]
     Dosage: 1000 MUG, QD
     Route: 048
     Dates: start: 20120104
  6. ANANDRON [Concomitant]
     Dosage: 150 MG, QD
     Route: 048
     Dates: start: 20101124
  7. AMLODIPINE [Concomitant]
     Dosage: 5 MG, QD
     Route: 048
     Dates: start: 20100924
  8. ATENOLOL [Concomitant]
     Dosage: 50 MG, QD
     Route: 048
     Dates: start: 20100924

REACTIONS (1)
  - Osteonecrosis of jaw [Not Recovered/Not Resolved]
